FAERS Safety Report 23178002 (Version 2)
Quarter: 2024Q1

REPORT INFORMATION
  Report Type: Spontaneous
  Country: US (occurrence: US)
  Receive Date: 20231113
  Receipt Date: 20240102
  Transmission Date: 20240410
  Serious: No
  Sender: FDA-Public Use
  Company Number: US-AMGEN-USASP2023202338

PATIENT
  Age: 48 Year
  Sex: Female

DRUGS (1)
  1. AMJEVITA [Suspect]
     Active Substance: ADALIMUMAB-ATTO
     Indication: Colitis ulcerative
     Dosage: 40 MILLIGRAM
     Route: 065
     Dates: start: 20231110

REACTIONS (5)
  - Illness [Unknown]
  - Device difficult to use [Unknown]
  - Accidental exposure to product [Unknown]
  - Product administration error [Unknown]
  - Product storage error [Unknown]

NARRATIVE: CASE EVENT DATE: 20231110
